FAERS Safety Report 7730718-4 (Version None)
Quarter: 2011Q3

REPORT INFORMATION
  Report Type: 
  Country: None (occurrence: None)
  Receive Date: 20110906
  Receipt Date: 20110829
  Transmission Date: 20111222
  Serious: Yes (Hospitalization)
  Sender: FDA-Public Use
  Company Number: DE-GLAXOSMITHKLINE-B0551184A

PATIENT
  Sex: Female
  Weight: 49 kg

DRUGS (5)
  1. TOPOTECAN [Suspect]
     Indication: NEOPLASM MALIGNANT
     Dosage: .75MG EVERY 3 WEEKS
     Route: 042
     Dates: start: 20081119
  2. AUGMENTIN '125' [Concomitant]
     Indication: URINARY TRACT INFECTION
     Dosage: 125MG PER DAY
     Route: 048
     Dates: start: 20081213
  3. CARBOPLATIN [Suspect]
     Indication: NEOPLASM MALIGNANT
     Route: 042
     Dates: start: 20081121
  4. CIPROFLOXACIN [Concomitant]
     Indication: URINARY TRACT INFECTION
     Dosage: 250MG PER DAY
     Route: 048
     Dates: start: 20081204, end: 20081207
  5. METOPROLOL SUCCINATE [Concomitant]
     Indication: HYPERTENSION
     Dosage: 6.25MG PER DAY
     Route: 048
     Dates: start: 20081009

REACTIONS (1)
  - BLOOD CREATININE INCREASED [None]
